FAERS Safety Report 5330347-6 (Version None)
Quarter: 2007Q2

REPORT INFORMATION
  Report Type: 
  Country: None (occurrence: None)
  Receive Date: 20070521
  Receipt Date: 20070509
  Transmission Date: 20071010
  Serious: Yes (Death, Other)
  Sender: FDA-Public Use
  Company Number: US-PFIZER INC-2006123367

PATIENT
  Sex: Female

DRUGS (9)
  1. NEURONTIN [Suspect]
     Indication: PAIN
  2. GABAPENTIN [Suspect]
     Indication: PAIN
  3. FENTANYL [Suspect]
  4. PHENOBARBITAL TAB [Suspect]
  5. PROPOXYPHENE HYDROCHLORIDE [Suspect]
  6. ACETAMINOPHEN [Suspect]
  7. MORPHINE [Suspect]
  8. LORAZEPAM [Suspect]
  9. KLONOPIN [Suspect]

REACTIONS (4)
  - COMPLETED SUICIDE [None]
  - DRUG INEFFECTIVE [None]
  - INTENTIONAL OVERDOSE [None]
  - SUICIDE ATTEMPT [None]
